FAERS Safety Report 18324860 (Version 3)
Quarter: 2020Q4

REPORT INFORMATION
  Report Type: Spontaneous
  Country: US (occurrence: US)
  Receive Date: 20200929
  Receipt Date: 20201019
  Transmission Date: 20210113
  Serious: No
  Sender: FDA-Public Use
  Company Number: US-PFIZER INC-2019152066

PATIENT
  Age: 34 Year
  Sex: Female

DRUGS (2)
  1. LYRICA [Suspect]
     Active Substance: PREGABALIN
     Indication: ASTHENIA
     Dosage: 200 MG, 2X/DAY (2 CAPSULES AT 7AM AND 2 AT 10 IN THE EVENING)
     Route: 048
     Dates: start: 20190318, end: 20190327
  2. LYRICA [Suspect]
     Active Substance: PREGABALIN
     Indication: GUILLAIN-BARRE SYNDROME
     Dosage: 150 MG, 3X/DAY, [TAKE 1 CAPSULE BY MOUTH 3 TIMES DAILY]
     Route: 048
     Dates: start: 20190325

REACTIONS (2)
  - Drug ineffective for unapproved indication [Unknown]
  - Off label use [Unknown]

NARRATIVE: CASE EVENT DATE: 20190318
